FAERS Safety Report 10173266 (Version 1)
Quarter: 2014Q2

REPORT INFORMATION
  Report Type: Spontaneous
  Country: MX (occurrence: MX)
  Receive Date: 20140515
  Receipt Date: 20140515
  Transmission Date: 20141212
  Serious: Yes (Other)
  Sender: FDA-Public Use
  Company Number: MX-JNJFOC-20140506377

PATIENT
  Age: 52 Year
  Sex: Female
  Weight: 61 kg

DRUGS (3)
  1. REMICADE [Suspect]
     Indication: PRODUCT USED FOR UNKNOWN INDICATION
     Route: 042
     Dates: start: 20140507
  2. REMICADE [Suspect]
     Indication: PRODUCT USED FOR UNKNOWN INDICATION
     Route: 042
     Dates: start: 20140311
  3. METHOTREXATE [Concomitant]
     Route: 065

REACTIONS (5)
  - Respiratory failure [Recovering/Resolving]
  - Infusion related reaction [Recovering/Resolving]
  - Pharyngeal oedema [Recovering/Resolving]
  - Cough [Recovering/Resolving]
  - Erythema [Recovering/Resolving]
